FAERS Safety Report 12289816 (Version 1)
Quarter: 2016Q2

REPORT INFORMATION
  Report Type: Spontaneous
  Country: US (occurrence: US)
  Receive Date: 20160421
  Receipt Date: 20160421
  Transmission Date: 20160815
  Serious: No
  Sender: FDA-Public Use
  Company Number: US-TEVA-616029USA

PATIENT
  Sex: Male

DRUGS (8)
  1. CENTRUM SILVER [Concomitant]
     Active Substance: MINERALS\VITAMINS
  2. HYDROCHLOROTHIAZIDE. [Concomitant]
     Active Substance: HYDROCHLOROTHIAZIDE
  3. COENZYME Q10 [Concomitant]
     Active Substance: UBIDECARENONE
  4. ANAGRELIDE [Suspect]
     Active Substance: ANAGRELIDE
     Route: 065
     Dates: end: 20151002
  5. JAKAFI [Suspect]
     Active Substance: RUXOLITINIB
     Indication: PLATELET DISORDER
     Dosage: 20 MILLIGRAM DAILY;
     Route: 048
     Dates: start: 201507
  6. CILOSTAZOL. [Concomitant]
     Active Substance: CILOSTAZOL
  7. CALCIUM [Concomitant]
     Active Substance: CALCIUM
  8. ASPIRIN. [Concomitant]
     Active Substance: ASPIRIN

REACTIONS (10)
  - Asthenia [Unknown]
  - Crying [Unknown]
  - Fatigue [Unknown]
  - Abdominal discomfort [Unknown]
  - Pain [Unknown]
  - Puncture site haemorrhage [Unknown]
  - Amnesia [Unknown]
  - Gait disturbance [Unknown]
  - Posture abnormal [Unknown]
  - Dizziness [Unknown]

NARRATIVE: CASE EVENT DATE: 2015
